FAERS Safety Report 15146381 (Version 1)
Quarter: 2018Q3

REPORT INFORMATION
  Report Type: Spontaneous
  Country: US (occurrence: US)
  Receive Date: 20180715
  Receipt Date: 20180715
  Transmission Date: 20181010
  Serious: No
  Sender: FDA-Public Use
  Company Number: US-JNJFOC-20180703225

PATIENT
  Age: 74 Year
  Sex: Female
  Weight: 64.86 kg

DRUGS (1)
  1. SIMPONI [Suspect]
     Active Substance: GOLIMUMAB
     Indication: RHEUMATOID ARTHRITIS
     Route: 058
     Dates: start: 201705

REACTIONS (1)
  - Gastrointestinal infection [Unknown]

NARRATIVE: CASE EVENT DATE: 201806
